FAERS Safety Report 23278725 (Version 2)
Quarter: 2023Q4

REPORT INFORMATION
  Report Type: Spontaneous
  Country: US (occurrence: US)
  Receive Date: 20231208
  Receipt Date: 20231208
  Transmission Date: 20240110
  Serious: No
  Sender: FDA-Public Use
  Company Number: US-NOVOPROD-1128265

PATIENT
  Sex: Male

DRUGS (4)
  1. NOVOLIN N [Suspect]
     Active Substance: INSULIN HUMAN
     Indication: Renal transplant
     Dosage: 17 UNITS MORNING, 19 UNITS AT BED TIME
     Route: 058
     Dates: start: 20230424
  2. NOVOLIN R [Suspect]
     Active Substance: INSULIN HUMAN
     Indication: Renal transplant
     Dosage: 9 UNITS AT MORNING
     Route: 058
     Dates: start: 20230424
  3. PREDNISONE [Concomitant]
     Active Substance: PREDNISONE
     Indication: Product used for unknown indication
     Dosage: UNK
  4. TACROLIMUS [Concomitant]
     Active Substance: TACROLIMUS
     Indication: Product used for unknown indication
     Dosage: UNK

REACTIONS (3)
  - Balance disorder [Unknown]
  - Hypertension [Unknown]
  - Product use in unapproved indication [Unknown]
